FAERS Safety Report 13097808 (Version 1)
Quarter: 2017Q1

REPORT INFORMATION
  Report Type: Spontaneous
  Country: US (occurrence: US)
  Receive Date: 20170109
  Receipt Date: 20170109
  Transmission Date: 20170428
  Serious: Yes (Death, Hospitalization)
  Sender: FDA-Public Use
  Company Number: US-BAYER-2017-001460

PATIENT
  Age: 51 Year
  Sex: Male

DRUGS (4)
  1. ACETYLSALICYLIC ACID (} 100 MG) [Suspect]
     Active Substance: ASPIRIN
     Dosage: UNK
     Route: 048
  2. BETA BLOCKING AGENTS [Suspect]
     Active Substance: UNSPECIFIED INGREDIENT
  3. ANGIOTENSIN II ANTAGONISTS [Suspect]
     Active Substance: UNSPECIFIED INGREDIENT
  4. WASHING AGENTS ETC. [Suspect]
     Active Substance: UNSPECIFIED INGREDIENT

REACTIONS (1)
  - Toxicity to various agents [Fatal]
